FAERS Safety Report 6250328-8 (Version None)
Quarter: 2009Q2

REPORT INFORMATION
  Report Type: 
  Country: None (occurrence: None)
  Receive Date: 20090630
  Receipt Date: 20090619
  Transmission Date: 20091009
  Serious: Yes (Hospitalization)
  Sender: FDA-Public Use
  Company Number: BR-BAYER-200917805LA

PATIENT
  Age: 64 Year
  Sex: Male

DRUGS (4)
  1. BETAFERON [Suspect]
     Indication: MULTIPLE SCLEROSIS
     Dosage: BETAJECT
     Route: 058
     Dates: start: 20070101, end: 20090101
  2. BETAFERON [Suspect]
     Dosage: BETAJECT
     Route: 058
     Dates: start: 20090101
  3. GLYBURIDE [Concomitant]
     Indication: DIABETES MELLITUS
     Route: 048
     Dates: start: 19950101
  4. INSULIN [Concomitant]
     Indication: DIABETES MELLITUS
     Route: 058
     Dates: start: 20090101, end: 20090101

REACTIONS (3)
  - FALL [None]
  - FEMUR FRACTURE [None]
  - MULTIPLE SCLEROSIS [None]
